FAERS Safety Report 7678615-7 (Version None)
Quarter: 2011Q3

REPORT INFORMATION
  Report Type: 
  Country: None (occurrence: None)
  Receive Date: 20110811
  Receipt Date: 20110802
  Transmission Date: 20111222
  Serious: Yes (Death, Hospitalization, Disabling, Other)
  Sender: FDA-Public Use
  Company Number: JP-BAYER-2011-066187

PATIENT
  Age: 83 Year
  Sex: Male

DRUGS (2)
  1. ASPIRIN [Suspect]
     Indication: ANGINA PECTORIS
     Dosage: UNK
     Route: 048
     Dates: start: 20080101
  2. PLAVIX [Suspect]
     Indication: ANGINA PECTORIS
     Dosage: UNK
     Route: 048
     Dates: start: 20080101

REACTIONS (14)
  - VIITH NERVE PARALYSIS [None]
  - PNEUMONIA ASPIRATION [None]
  - VOMITING [None]
  - DYSARTHRIA [None]
  - GASTROOESOPHAGEAL REFLUX DISEASE [None]
  - RESPIRATORY ARREST [None]
  - INTESTINAL OBSTRUCTION [None]
  - INTESTINAL HAEMORRHAGE [None]
  - ABDOMINAL PAIN UPPER [None]
  - MELAENA [None]
  - PYREXIA [None]
  - LOBAR PNEUMONIA [None]
  - HAEMATEMESIS [None]
  - TRANSIENT ISCHAEMIC ATTACK [None]
